FAERS Safety Report 10065534 (Version 1)
Quarter: 2014Q2

REPORT INFORMATION
  Report Type: Spontaneous
  Country: JP (occurrence: JP)
  Receive Date: 20140408
  Receipt Date: 20140408
  Transmission Date: 20141212
  Serious: Yes (Hospitalization, Other)
  Sender: FDA-Public Use
  Company Number: JP-ACTAVIS-2014-06514

PATIENT
  Age: 35 Year
  Sex: Female

DRUGS (1)
  1. PROPYLTHIOURACIL (AELLC) [Suspect]
     Indication: BASEDOW^S DISEASE
     Dosage: 150 MG, DAILY
     Route: 065
     Dates: start: 20100410

REACTIONS (1)
  - Anti-neutrophil cytoplasmic antibody positive vasculitis [Recovering/Resolving]
